FAERS Safety Report 6925481-0 (Version None)
Quarter: 2010Q3

REPORT INFORMATION
  Report Type: 
  Country: None (occurrence: None)
  Receive Date: 20100816
  Receipt Date: 20100804
  Transmission Date: 20110219
  Serious: Yes (Other)
  Sender: FDA-Public Use
  Company Number: US-PFIZER INC-2010085278

PATIENT
  Sex: Female

DRUGS (2)
  1. GLIPIZIDE [Suspect]
     Dosage: 5 MG, 2X/DAY
  2. GLIPIZIDE [Suspect]

REACTIONS (1)
  - BLOOD GLUCOSE INCREASED [None]
